FAERS Safety Report 6622007-6 (Version None)
Quarter: 2010Q1

REPORT INFORMATION
  Report Type: 
  Country: None (occurrence: None)
  Receive Date: 20100303
  Receipt Date: 20100224
  Transmission Date: 20100710
  Serious: Yes (Death, Hospitalization, Other)
  Sender: FDA-Public Use
  Company Number: CERZ-1000757

PATIENT
  Age: 76 Year
  Sex: Male
  Weight: 87.7 kg

DRUGS (1)
  1. CEREZYME [Suspect]
     Indication: GAUCHER'S DISEASE
     Dosage: INTRAVENOUS
     Route: 042
     Dates: start: 19940101, end: 20090714

REACTIONS (4)
  - CHRONIC LYMPHOCYTIC LEUKAEMIA [None]
  - RESPIRATORY DISTRESS [None]
  - SEPTIC SHOCK [None]
  - THYROID CANCER [None]
